FAERS Safety Report 16897577 (Version 1)
Quarter: 2019Q4

REPORT INFORMATION
  Report Type: Spontaneous
  Country: GB (occurrence: GB)
  Receive Date: 20191009
  Receipt Date: 20191009
  Transmission Date: 20200122
  Serious: Yes (Other)
  Sender: FDA-Public Use
  Company Number: GB-TEVA-2019-GB-1118230

PATIENT
  Age: 55 Year
  Sex: Female
  Weight: 84 kg

DRUGS (8)
  1. FLUOXETINE [Concomitant]
     Active Substance: FLUOXETINE HYDROCHLORIDE
     Dosage: TAKE TWO ONE DAY AND ONE THE NEXT
     Dates: start: 20190128
  2. DOVOBET [Concomitant]
     Active Substance: BETAMETHASONE\CALCIPOTRIENE
     Dosage: APPLY (1 DOSAGE FORM PER DAY)
     Dates: start: 20170808
  3. ENSTILAR [Concomitant]
     Active Substance: BETAMETHASONE DIPROPIONATE\CALCIPOTRIENE HYDRATE
     Dosage: APPLY (2 DOSAGE FORMS EVERY WEEK)
     Dates: start: 20180212
  4. LEVOTHYROXINE. [Concomitant]
     Active Substance: LEVOTHYROXINE
     Dosage: MORNING (125 MICROGRAM PER DAY)
     Dates: start: 20190128
  5. AMLODIPINE [Suspect]
     Active Substance: AMLODIPINE BESYLATE
     Dosage: 5 MILLIGRAM PER DAY
     Dates: start: 20190128
  6. EXOREX [Concomitant]
     Active Substance: COAL TAR
     Dosage: APPLY 2-3 TIMES/DAY
     Dates: start: 20180212
  7. ZEROBASE [Concomitant]
     Active Substance: MINERAL OIL\PARAFFIN
     Dosage: APPLY AS DIRECTED. THIS IS A PARAFFIN-BASED PRO...
     Dates: start: 20170808
  8. ELIDEL [Concomitant]
     Active Substance: PIMECROLIMUS
     Dosage: APPLY (2 DOSAGE FORMS PER DAY)
     Dates: start: 20170808

REACTIONS (1)
  - Gingival hypertrophy [Unknown]

NARRATIVE: CASE EVENT DATE: 20190914
